FAERS Safety Report 4986935-X (Version None)
Quarter: 2006Q2

REPORT INFORMATION
  Report Type: 
  Country: None (occurrence: None)
  Receive Date: 20060501
  Receipt Date: 20060419
  Transmission Date: 20061013
  Serious: Yes (Hospitalization)
  Sender: FDA-Public Use
  Company Number: 2006AP01812

PATIENT
  Age: 54 Year
  Sex: Male
  Weight: 100 kg

DRUGS (3)
  1. SEROQUEL [Suspect]
     Indication: PSYCHOTIC DISORDER
     Route: 048
     Dates: start: 20051123, end: 20060118
  2. LITHIUM CARBONATE [Suspect]
     Indication: DEPRESSION
     Route: 048
     Dates: start: 20050101, end: 20060118
  3. PAROXETINE HYDROCHLORIDE [Concomitant]
     Indication: DEPRESSION
     Route: 048
     Dates: start: 20031111, end: 20060118

REACTIONS (2)
  - SEROTONIN SYNDROME [None]
  - TARDIVE DYSKINESIA [None]
